FAERS Safety Report 23368733 (Version 1)
Quarter: 2024Q1

REPORT INFORMATION
  Report Type: Spontaneous
  Country: IT (occurrence: None)
  Receive Date: 20240105
  Receipt Date: 20240105
  Transmission Date: 20240410
  Serious: Yes (Other)
  Sender: FDA-Public Use
  Company Number: None

PATIENT
  Age: 54 Year
  Sex: Male

DRUGS (3)
  1. ATEZOLIZUMAB [Suspect]
     Active Substance: ATEZOLIZUMAB
     Indication: Hepatocellular carcinoma
     Route: 065
     Dates: start: 20230328, end: 20230328
  2. BEVACIZUMAB [Suspect]
     Active Substance: BEVACIZUMAB
     Indication: Hepatocellular carcinoma
     Route: 065
     Dates: start: 20230328, end: 20230328
  3. CARVEDILOL [Concomitant]
     Active Substance: CARVEDILOL
     Dosage: 1 CP ORE 8.00 ,1/2 ORE 20.00

REACTIONS (4)
  - Oral mucosal scab [Not Recovered/Not Resolved]
  - Stomatitis [Not Recovered/Not Resolved]
  - Gingival pain [Not Recovered/Not Resolved]
  - Toothache [Not Recovered/Not Resolved]

NARRATIVE: CASE EVENT DATE: 20230409
